FAERS Safety Report 5742301-0 (Version None)
Quarter: 2008Q2

REPORT INFORMATION
  Report Type: 
  Country: None (occurrence: None)
  Receive Date: 20080519
  Receipt Date: 20080508
  Transmission Date: 20081010
  Serious: Yes (Other)
  Sender: FDA-Public Use
  Company Number: PHHY2008US07591

PATIENT
  Age: 25 Year
  Sex: Female
  Weight: 81.632 kg

DRUGS (6)
  1. LITHIUM CARBONATE [Concomitant]
  2. STELAZINE [Concomitant]
  3. SYNTHROID [Concomitant]
  4. VITAMINS [Concomitant]
  5. CLOZARIL [Suspect]
     Indication: SCHIZOAFFECTIVE DISORDER
     Dosage: 200 MG, QHS
     Route: 048
     Dates: start: 19920818, end: 19921127
  6. CLOZARIL [Suspect]
     Dosage: 200 MG, QHS
     Route: 048
     Dates: start: 19921201, end: 19930106

REACTIONS (5)
  - LYMPHOCYTE COUNT INCREASED [None]
  - MONOCYTE COUNT INCREASED [None]
  - NEUTROPHIL COUNT DECREASED [None]
  - PSYCHIATRIC SYMPTOM [None]
  - WHITE BLOOD CELL COUNT DECREASED [None]
